FAERS Safety Report 10061359 (Version 3)
Quarter: 2014Q2

REPORT INFORMATION
  Report Type: Spontaneous
  Country: BE (occurrence: BE)
  Receive Date: 20140407
  Receipt Date: 20140516
  Transmission Date: 20141212
  Serious: Yes (Hospitalization)
  Sender: FDA-Public Use
  Company Number: BE-BAYER-2014-051191

PATIENT
  Age: 56 Year
  Sex: Female

DRUGS (5)
  1. BETAFERON [Suspect]
     Indication: MULTIPLE SCLEROSIS
     Dosage: UNK
     Dates: start: 2004, end: 201403
  2. BACLOFEN [Concomitant]
     Dosage: UNK
  3. LYSANXIA [Concomitant]
     Dosage: UNK
  4. SERTRALINE [Concomitant]
     Dosage: UNK
     Dates: start: 201403
  5. ZOROXIN [Concomitant]
     Indication: URINARY TRACT INFECTION

REACTIONS (3)
  - Thrombotic microangiopathy [None]
  - Hypertension [None]
  - Myocardial infarction [None]
